FAERS Safety Report 5107734-4 (Version None)
Quarter: 2006Q3

REPORT INFORMATION
  Report Type: 
  Country: None (occurrence: None)
  Receive Date: 20060919
  Receipt Date: 20060811
  Transmission Date: 20061208
  Serious: Yes (Other)
  Sender: FDA-Public Use
  Company Number: US-AVENTIS-200616713US

PATIENT
  Sex: Male
  Weight: 78 kg

DRUGS (3)
  1. KETEK [Suspect]
     Indication: SINUSITIS
     Dosage: DOSE: UNK
     Dates: start: 20060626, end: 20060627
  2. VICODIN [Concomitant]
     Dosage: DOSE: UNK
  3. ENTEX LA [Concomitant]
     Dosage: DOSE: UNK

REACTIONS (9)
  - ALANINE AMINOTRANSFERASE INCREASED [None]
  - ASPARTATE AMINOTRANSFERASE INCREASED [None]
  - BLOOD ALKALINE PHOSPHATASE INCREASED [None]
  - CHROMATURIA [None]
  - FATIGUE [None]
  - HEPATITIS [None]
  - NAUSEA [None]
  - PYREXIA [None]
  - URINE OUTPUT DECREASED [None]
